FAERS Safety Report 6626130-1 (Version None)
Quarter: 2010Q1

REPORT INFORMATION
  Report Type: 
  Country: None (occurrence: None)
  Receive Date: 20100310
  Receipt Date: 20100303
  Transmission Date: 20100710
  Serious: Yes (Other)
  Sender: FDA-Public Use
  Company Number: D0066013A

PATIENT
  Sex: Female

DRUGS (1)
  1. VIANI 50-250 DISKUS [Suspect]
     Dosage: 300MCG UNKNOWN
     Route: 055

REACTIONS (4)
  - BRONCHIAL OBSTRUCTION [None]
  - CHOKING [None]
  - COUGH [None]
  - PRODUCT QUALITY ISSUE [None]
